FAERS Safety Report 17589465 (Version 1)
Quarter: 2020Q1

REPORT INFORMATION
  Report Type: Spontaneous
  Country: US (occurrence: US)
  Receive Date: 20200327
  Receipt Date: 20200327
  Transmission Date: 20200409
  Serious: No
  Sender: FDA-Public Use
  Company Number: US-ALLERGAN-1944393US

PATIENT
  Sex: Female

DRUGS (2)
  1. LATISSE [Suspect]
     Active Substance: BIMATOPROST
     Indication: PRODUCT USED FOR UNKNOWN INDICATION
     Route: 065
  2. AZITHROMYCIN ANHYDROUS. [Concomitant]
     Active Substance: AZITHROMYCIN ANHYDROUS
     Indication: BLEPHAROPLASTY
     Dosage: UNK
     Route: 061
     Dates: start: 201810

REACTIONS (4)
  - Adverse event [Unknown]
  - Blepharoplasty [Unknown]
  - Product quality issue [Unknown]
  - Madarosis [Unknown]

NARRATIVE: CASE EVENT DATE: 201810
